FAERS Safety Report 25704796 (Version 1)
Quarter: 2025Q3

REPORT INFORMATION
  Report Type: Spontaneous
  Country: US (occurrence: US)
  Receive Date: 20250820
  Receipt Date: 20250820
  Transmission Date: 20251020
  Serious: Yes (Death, Hospitalization)
  Sender: STRIDES
  Company Number: US-STRIDES ARCOLAB LIMITED-2024SP013381

PATIENT
  Age: 62 Year
  Sex: Female

DRUGS (5)
  1. TACROLIMUS [Suspect]
     Active Substance: TACROLIMUS
     Indication: Encephalitis autoimmune
     Route: 065
  2. NIVOLUMAB [Suspect]
     Active Substance: NIVOLUMAB
     Indication: Lung adenocarcinoma stage IV
     Route: 065
  3. NIVOLUMAB [Suspect]
     Active Substance: NIVOLUMAB
     Indication: Metastases to central nervous system
  4. NELVUTAMIG [Suspect]
     Active Substance: NELVUTAMIG
     Indication: Lung adenocarcinoma stage IV
     Route: 065
  5. NELVUTAMIG [Suspect]
     Active Substance: NELVUTAMIG
     Indication: Metastases to central nervous system

REACTIONS (2)
  - Sepsis [Fatal]
  - Drug ineffective for unapproved indication [Unknown]
